FAERS Safety Report 8028904-1 (Version None)
Quarter: 2012Q1

REPORT INFORMATION
  Report Type: 
  Country: None (occurrence: None)
  Receive Date: 20120106
  Receipt Date: 20111230
  Transmission Date: 20120608
  Serious: Yes (Life-Threatening, Other)
  Sender: FDA-Public Use
  Company Number: FR-GLAXOSMITHKLINE-B0772379A

PATIENT
  Sex: Female

DRUGS (4)
  1. PLAVIX [Concomitant]
     Dosage: 75MG PER DAY
     Route: 048
     Dates: start: 20111029
  2. ASPIRIN [Concomitant]
     Dosage: 75MG PER DAY
     Route: 048
     Dates: start: 20111029
  3. ZOVIRAX [Suspect]
     Indication: MENINGITIS HERPES
     Dosage: 750MG THREE TIMES PER DAY
     Route: 042
     Dates: start: 20111030
  4. CLONAZEPAM [Concomitant]
     Dosage: 1AMP PER DAY
     Route: 042
     Dates: start: 20111029, end: 20111031

REACTIONS (1)
  - RENAL FAILURE ACUTE [None]
